FAERS Safety Report 6479558-7 (Version None)
Quarter: 2009Q4

REPORT INFORMATION
  Report Type: 
  Country: None (occurrence: None)
  Receive Date: 20091207
  Receipt Date: 20091207
  Transmission Date: 20100525
  Serious: No
  Sender: FDA-Public Use
  Company Number: None

PATIENT
  Age: 48 Year
  Sex: Female
  Weight: 61.2356 kg

DRUGS (1)
  1. BONIVA [Suspect]
     Indication: OSTEOPENIA
     Dosage: ONCE A MONTH PO
     Route: 048
     Dates: start: 20091101, end: 20091201

REACTIONS (6)
  - ABDOMINAL DISCOMFORT [None]
  - DYSSTASIA [None]
  - INFLUENZA LIKE ILLNESS [None]
  - MUSCLE SPASMS [None]
  - MYALGIA [None]
  - PAIN OF SKIN [None]
